FAERS Safety Report 4700620-0 (Version None)
Quarter: 2005Q2

REPORT INFORMATION
  Report Type: 
  Country: None (occurrence: None)
  Receive Date: 20050627
  Receipt Date: 20050613
  Transmission Date: 20051028
  Serious: Yes (Other)
  Sender: FDA-Public Use
  Company Number: 2005088281

PATIENT
  Sex: Female

DRUGS (9)
  1. VFEND [Suspect]
     Indication: BRAIN ABSCESS
     Dosage: 1 IN 1 D, ORAL
     Route: 048
     Dates: start: 20050224
  2. VFEND [Suspect]
     Indication: GRANULOMA
     Dosage: 1 IN 1 D, ORAL
     Route: 048
     Dates: start: 20050224
  3. DEXAMETHASONE [Suspect]
     Indication: ILL-DEFINED DISORDER
     Dosage: 4 MG (2 IN 1 D), ORAL
     Route: 048
     Dates: start: 20050408
  4. ACETAMINOPHEN [Concomitant]
  5. BACTRIM [Concomitant]
  6. FRAXIPARINE (HEPARIN-FRACTION, CALCIUM SALT) [Concomitant]
  7. ZOFRAN [Concomitant]
  8. NEXIUM [Concomitant]
  9. MERONEM (MEROPENEM) [Concomitant]

REACTIONS (6)
  - BRAIN ABSCESS [None]
  - CHOLESTASIS [None]
  - CONDITION AGGRAVATED [None]
  - DRUG INTERACTION [None]
  - DRUG LEVEL BELOW THERAPEUTIC [None]
  - DRUG LEVEL DECREASED [None]
